FAERS Safety Report 25230151 (Version 1)
Quarter: 2025Q2

REPORT INFORMATION
  Report Type: Spontaneous
  Country: US (occurrence: US)
  Receive Date: 20250423
  Receipt Date: 20250423
  Transmission Date: 20250717
  Serious: Yes (Life-Threatening, Hospitalization)
  Sender: PFIZER
  Company Number: US-PFIZER INC-202500084602

PATIENT
  Age: 51 Year
  Sex: Female

DRUGS (4)
  1. SPIRONOLACTONE [Suspect]
     Active Substance: SPIRONOLACTONE
  2. METOPROLOL TARTRATE [Suspect]
     Active Substance: METOPROLOL TARTRATE
  3. LASIX [Suspect]
     Active Substance: FUROSEMIDE
  4. LIPITOR [Suspect]
     Active Substance: ATORVASTATIN CALCIUM

REACTIONS (14)
  - Myocardial infarction [Unknown]
  - Cardiac failure congestive [Unknown]
  - Cardiac failure congestive [Unknown]
  - Hemiplegic migraine [Unknown]
  - Memory impairment [Unknown]
  - Intervertebral disc protrusion [Unknown]
  - Sciatica [Unknown]
  - Intervertebral disc degeneration [Unknown]
  - Arteriosclerosis [Unknown]
  - Abdominal pain [Unknown]
  - Ovarian cyst [Unknown]
  - Hernia [Unknown]
  - Uterine leiomyoma [Unknown]
  - Tachycardia [Unknown]

NARRATIVE: CASE EVENT DATE: 20250418
